FAERS Safety Report 12489284 (Version 2)
Quarter: 2016Q3

REPORT INFORMATION
  Report Type: Spontaneous
  Country: BR (occurrence: BR)
  Receive Date: 20160622
  Receipt Date: 20160705
  Transmission Date: 20161109
  Serious: Yes (Other)
  Sender: FDA-Public Use
  Company Number: BR-ELI_LILLY_AND_COMPANY-BR201606004239

PATIENT
  Sex: Female
  Weight: 72 kg

DRUGS (1)
  1. GEMZAR [Suspect]
     Active Substance: GEMCITABINE HYDROCHLORIDE
     Indication: BLADDER CANCER
     Dosage: 1789 MG, WEEKLY (1/W)
     Route: 042
     Dates: start: 20160602

REACTIONS (1)
  - Infusion site pain [Recovered/Resolved]
